FAERS Safety Report 17808263 (Version 1)
Quarter: 2020Q2

REPORT INFORMATION
  Report Type: Spontaneous
  Country: TR (occurrence: TR)
  Receive Date: 20200520
  Receipt Date: 20200520
  Transmission Date: 20200714
  Serious: Yes (Life-Threatening, Hospitalization)
  Sender: FDA-Public Use
  Company Number: TR-ASTRAZENECA-2020SE63420

PATIENT
  Age: 40 Year
  Sex: Male

DRUGS (1)
  1. SEROQUEL [Suspect]
     Active Substance: QUETIAPINE FUMARATE
     Indication: SUICIDAL IDEATION
     Dosage: 3.6-4 G
     Route: 048

REACTIONS (3)
  - Intentional overdose [Unknown]
  - Hyperbilirubinaemia [Unknown]
  - Suicide attempt [Unknown]
